FAERS Safety Report 5913372-3 (Version None)
Quarter: 2008Q4

REPORT INFORMATION
  Report Type: 
  Country: None (occurrence: None)
  Receive Date: 20081009
  Receipt Date: 20081001
  Transmission Date: 20090506
  Serious: Yes (Death, Hospitalization, Other)
  Sender: FDA-Public Use
  Company Number: PHHY2008JP22615

PATIENT
  Age: 63 Year
  Sex: Female
  Weight: 53.7 kg

DRUGS (4)
  1. CYCLOSPORINE [Suspect]
     Indication: DERMATOMYOSITIS
  2. PREDNISOLONE [Concomitant]
  3. STEROIDS NOS [Concomitant]
  4. ENDOXAN [Concomitant]

REACTIONS (11)
  - ABDOMINAL OPERATION [None]
  - ANASTOMOTIC LEAK [None]
  - CELLULITIS [None]
  - CYTOMEGALOVIRUS INFECTION [None]
  - DIFFUSE ALVEOLAR DAMAGE [None]
  - FUNGAL INFECTION [None]
  - INTERSTITIAL LUNG DISEASE [None]
  - INTESTINAL PERFORATION [None]
  - PERITONITIS [None]
  - RASH [None]
  - RESPIRATORY FAILURE [None]
